FAERS Safety Report 5742189-8 (Version None)
Quarter: 2008Q2

REPORT INFORMATION
  Report Type: 
  Country: None (occurrence: None)
  Receive Date: 20080514
  Receipt Date: 20080514
  Transmission Date: 20081010
  Serious: Yes (Hospitalization)
  Sender: FDA-Public Use
  Company Number: None

PATIENT
  Age: 87 Year
  Sex: Female
  Weight: 43.0917 kg

DRUGS (1)
  1. DIGOXIN [Suspect]
     Indication: ARRHYTHMIA
     Dosage: 1 TABLET MONDAY - FRIDAY PO
     Route: 048
     Dates: start: 20080125, end: 20080506

REACTIONS (4)
  - APHASIA [None]
  - DIARRHOEA [None]
  - NAUSEA [None]
  - THERAPEUTIC AGENT TOXICITY [None]
